FAERS Safety Report 6752007-7 (Version None)
Quarter: 2010Q2

REPORT INFORMATION
  Report Type: 
  Country: None (occurrence: None)
  Receive Date: 20100602
  Receipt Date: 20100525
  Transmission Date: 20101027
  Serious: Yes (Hospitalization)
  Sender: FDA-Public Use
  Company Number: JP-MERCK-1005USA02077

PATIENT
  Age: 69 Year
  Sex: Female
  Weight: 68 kg

DRUGS (6)
  1. PEPCID [Suspect]
     Indication: OVARIAN CANCER
     Route: 041
     Dates: start: 20100511, end: 20100511
  2. DECADRON [Suspect]
     Indication: OVARIAN CANCER
     Route: 042
     Dates: start: 20100511, end: 20100511
  3. KYTRIL [Concomitant]
     Route: 048
     Dates: start: 20100511, end: 20100511
  4. RAMELTEON [Suspect]
     Indication: OVARIAN CANCER
     Route: 041
     Dates: start: 20100511, end: 20100511
  5. PACLITAXEL [Suspect]
     Route: 041
  6. VENA [Concomitant]
     Route: 048
     Dates: start: 20100511, end: 20100511

REACTIONS (1)
  - SHOCK [None]
